FAERS Safety Report 17758717 (Version 1)
Quarter: 2020Q2

REPORT INFORMATION
  Report Type: Spontaneous
  Country: CN (occurrence: CN)
  Receive Date: 20200507
  Receipt Date: 20200507
  Transmission Date: 20200714
  Serious: Yes (Death, Other)
  Sender: FDA-Public Use
  Company Number: CN-ROCHE-2596504

PATIENT
  Age: 58 Year
  Sex: Female

DRUGS (10)
  1. XELODA [Suspect]
     Active Substance: CAPECITABINE
     Indication: GASTRIC CANCER
     Dosage: XELOX REGIMEN 6 CYCLES
     Route: 065
     Dates: start: 201408, end: 201501
  2. XELODA [Suspect]
     Active Substance: CAPECITABINE
     Indication: METASTASES TO LYMPH NODES
     Dosage: 20 CYCLES
     Route: 065
     Dates: start: 201511, end: 201704
  3. HERCEPTIN [Suspect]
     Active Substance: TRASTUZUMAB
     Indication: GASTRIC CANCER
     Dosage: 6 CYCLES
     Route: 065
     Dates: start: 201408, end: 201501
  4. HERCEPTIN [Suspect]
     Active Substance: TRASTUZUMAB
     Indication: ADENOCARCINOMA
     Dosage: 6 CYCLE
     Route: 065
     Dates: start: 201502, end: 201511
  5. HERCEPTIN [Suspect]
     Active Substance: TRASTUZUMAB
     Indication: METASTASES TO LYMPH NODES
     Dosage: 20 CYCLES
     Route: 065
     Dates: start: 201511, end: 201704
  6. PACLITAXEL. [Concomitant]
     Active Substance: PACLITAXEL
     Dosage: 10 CYCLES
     Route: 065
     Dates: start: 201511
  7. XELODA [Suspect]
     Active Substance: CAPECITABINE
     Indication: ADENOCARCINOMA
     Dosage: 3 CYCLES
     Route: 065
     Dates: start: 201502, end: 201511
  8. APATINIB [Concomitant]
     Active Substance: APATINIB
     Route: 065
     Dates: start: 201704, end: 201803
  9. OXALIPLATIN. [Concomitant]
     Active Substance: OXALIPLATIN
     Dosage: XELOX REGIMEN 6 CYCLES
     Route: 065
     Dates: start: 201408, end: 201501
  10. PYROTINIB [Concomitant]
     Active Substance: PYROTINIB
     Route: 065
     Dates: start: 201803, end: 201804

REACTIONS (2)
  - Cardiac disorder [Fatal]
  - Gastrointestinal haemorrhage [Unknown]

NARRATIVE: CASE EVENT DATE: 201812
